FAERS Safety Report 9842444 (Version 2)
Quarter: 2014Q1

REPORT INFORMATION
  Report Type: Spontaneous
  Country: FI (occurrence: FI)
  Receive Date: 20140124
  Receipt Date: 20140124
  Transmission Date: 20141002
  Serious: Yes (Other)
  Sender: FDA-Public Use
  Company Number: FI-ASTRAZENECA-2013SE92625

PATIENT
  Age: 10337 Day
  Sex: Female

DRUGS (4)
  1. SYMBICORT TURBUHALER [Suspect]
     Indication: DYSPNOEA
     Dosage: 4 INHALATIONS DAILY
     Route: 055
     Dates: start: 20131108, end: 20131201
  2. SYMBICORT TURBUHALER [Suspect]
     Indication: COUGH
     Dosage: 4 INHALATIONS DAILY
     Route: 055
     Dates: start: 20131108, end: 20131201
  3. DELSORATADINE RATIOPHARM [Concomitant]
     Indication: DYSPNOEA
  4. DELSORATADINE RATIOPHARM [Concomitant]
     Indication: COUGH

REACTIONS (6)
  - Asthenia [Recovered/Resolved]
  - Fatigue [Recovered/Resolved]
  - Dizziness [Recovered/Resolved]
  - Headache [Recovered/Resolved]
  - Hypertension [Recovered/Resolved]
  - Heart rate increased [Recovered/Resolved]
